FAERS Safety Report 6182659-4 (Version None)
Quarter: 2009Q2

REPORT INFORMATION
  Report Type: 
  Country: None (occurrence: None)
  Receive Date: 20090507
  Receipt Date: 20090427
  Transmission Date: 20091009
  Serious: Yes (Other)
  Sender: FDA-Public Use
  Company Number: A0771112A

PATIENT
  Age: 23 Year
  Sex: Female
  Weight: 74.5 kg

DRUGS (2)
  1. BUPROPION HCL [Suspect]
     Indication: DEPRESSION
     Dosage: 100MG TWICE PER DAY
     Route: 048
     Dates: start: 20090128, end: 20090409
  2. VITAMIN TAB [Concomitant]

REACTIONS (7)
  - ABDOMINAL PAIN LOWER [None]
  - ABORTION INCOMPLETE [None]
  - ABORTION SPONTANEOUS [None]
  - ANTEPARTUM HAEMORRHAGE [None]
  - DRUG EXPOSURE DURING PREGNANCY [None]
  - INSOMNIA [None]
  - INTRA-UTERINE DEATH [None]
